FAERS Safety Report 11685638 (Version 1)
Quarter: 2015Q4

REPORT INFORMATION
  Report Type: Spontaneous
  Country: BR (occurrence: BR)
  Receive Date: 20151030
  Receipt Date: 20151030
  Transmission Date: 20160304
  Serious: Yes (Other)
  Sender: FDA-Public Use
  Company Number: BR-WATSON-2015-19728

PATIENT
  Age: 64 Year
  Sex: Female

DRUGS (2)
  1. METHYLPREDNISOLONE (UNKNOWN) [Suspect]
     Active Substance: METHYLPREDNISOLONE
     Indication: LEUKOENCEPHALOPATHY
     Dosage: 1 G/DAY FOR THREE DAYS
     Route: 042
  2. DEXAMETHASONE (UNKNOWN) [Suspect]
     Active Substance: DEXAMETHASONE
     Indication: LEUKOENCEPHALOPATHY
     Dosage: 10 MG/DAY
     Route: 048

REACTIONS (4)
  - Leukoencephalopathy [Recovered/Resolved]
  - Drug ineffective [Unknown]
  - Atypical mycobacterial infection [Recovered/Resolved]
  - Condition aggravated [Recovered/Resolved]
